FAERS Safety Report 11497295 (Version 1)
Quarter: 2015Q3

REPORT INFORMATION
  Report Type: Spontaneous
  Country: US (occurrence: US)
  Receive Date: 20150911
  Receipt Date: 20150911
  Transmission Date: 20151125
  Serious: No
  Sender: FDA-Public Use
  Company Number: US-JNJFOC-20150902112

PATIENT
  Age: 34 Year
  Sex: Male
  Weight: 88.45 kg

DRUGS (5)
  1. DURAGESIC [Suspect]
     Active Substance: FENTANYL
     Indication: HEADACHE
     Route: 062
     Dates: start: 201504, end: 201507
  2. DURAGESIC [Suspect]
     Active Substance: FENTANYL
     Indication: BACK PAIN
     Route: 062
     Dates: start: 201504, end: 201507
  3. GABAPENTIN. [Concomitant]
     Active Substance: GABAPENTIN
     Indication: NEUROPATHY PERIPHERAL
     Route: 048
     Dates: start: 2011
  4. DURAGESIC [Suspect]
     Active Substance: FENTANYL
     Indication: HEADACHE
     Route: 062
     Dates: start: 201507
  5. DURAGESIC [Suspect]
     Active Substance: FENTANYL
     Indication: BACK PAIN
     Route: 062
     Dates: start: 201507

REACTIONS (5)
  - Drug dose omission [Unknown]
  - Product quality issue [Unknown]
  - Underdose [Unknown]
  - Wrong technique in product usage process [Unknown]
  - Wrong technique in product usage process [Unknown]

NARRATIVE: CASE EVENT DATE: 201508
